FAERS Safety Report 14139192 (Version 2)
Quarter: 2017Q4

REPORT INFORMATION
  Report Type: Report from Study
  Country: None (occurrence: HU)
  Receive Date: 20171028
  Receipt Date: 20171101
  Transmission Date: 20180321
  Serious: No
  Sender: FDA-Public Use
  Company Number: HU-ABBVIE-17K-076-2145824-00

PATIENT
  Age: 41 Year
  Sex: Female

DRUGS (3)
  1. SALOFALK [Concomitant]
     Active Substance: MESALAMINE
     Indication: CROHN^S DISEASE
     Dosage: 3 TABLET AT A TIME
     Route: 048
     Dates: start: 2010
  2. HUMIRA [Suspect]
     Active Substance: ADALIMUMAB
     Indication: ANKYLOSING SPONDYLITIS
     Route: 058
     Dates: start: 201610, end: 201709
  3. SALOFALK [Concomitant]
     Active Substance: MESALAMINE
     Indication: COLITIS

REACTIONS (3)
  - Hypoacusis [Recovering/Resolving]
  - Inflammation [Not Recovered/Not Resolved]
  - Infection [Unknown]

NARRATIVE: CASE EVENT DATE: 201704
